FAERS Safety Report 19048030 (Version 1)
Quarter: 2021Q1

REPORT INFORMATION
  Report Type: Spontaneous
  Country: US (occurrence: US)
  Receive Date: 20210324
  Receipt Date: 20210324
  Transmission Date: 20210420
  Serious: No
  Sender: FDA-Public Use
  Company Number: US-AMGEN-USASP2021037429

PATIENT
  Age: 62 Year
  Sex: Female
  Weight: 57 kg

DRUGS (31)
  1. PREDNISONE. [Concomitant]
     Active Substance: PREDNISONE
     Dosage: 20 MILLIGRAM
     Dates: end: 20190521
  2. METHOCARBAMOL. [Concomitant]
     Active Substance: METHOCARBAMOL
     Dosage: 750 MILLIGRAM, BID
     Dates: end: 20190309
  3. CLIMARA [Concomitant]
     Active Substance: ESTRADIOL
     Dosage: 0.025 (MG/24HR)
  4. POLYETHYLENE GLYCOL 3350. [Concomitant]
     Active Substance: POLYETHYLENE GLYCOL 3350
     Dosage: (17 GRAM/DOSE ORAL POWDER)
     Route: 048
  5. ONDANSETRON [Concomitant]
     Active Substance: ONDANSETRON
     Dosage: 4 MILLIGRAM
     Dates: end: 20210309
  6. EZETIMIBE. [Concomitant]
     Active Substance: EZETIMIBE
     Dosage: 10 MILLIGRAM
     Dates: end: 20190521
  7. LINZESS [Concomitant]
     Active Substance: LINACLOTIDE
     Dosage: 290 MICROGRAM
  8. REPATHA [Suspect]
     Active Substance: EVOLOCUMAB
     Dosage: 420 (MG/3.5ML)
     Route: 058
  9. METRONIDAZOLE. [Concomitant]
     Active Substance: METRONIDAZOLE
     Dosage: 500 MILLIGRAM
     Route: 048
     Dates: end: 20190521
  10. SPIRONOLACTONE. [Concomitant]
     Active Substance: SPIRONOLACTONE
     Dosage: 50 MILLIGRAM, QD
     Route: 048
  11. ESTAZOLAM. [Concomitant]
     Active Substance: ESTAZOLAM
     Dosage: 2 MILLIGRAM
     Dates: end: 20190521
  12. TRIAMCINOLONE ACETONIDE. [Concomitant]
     Active Substance: TRIAMCINOLONE ACETONIDE
     Dosage: 1 PERCENT
     Dates: end: 20190521
  13. LIDOCAINE. [Concomitant]
     Active Substance: LIDOCAINE
     Dosage: 5 PERCENT
  14. METHYLPREDNISOLONE. [Concomitant]
     Active Substance: METHYLPREDNISOLONE
     Dosage: 4 MILLIGRAM
     Dates: end: 20200603
  15. MOVANTIK [Concomitant]
     Active Substance: NALOXEGOL OXALATE
     Dosage: 25 MILLIGRAM, QD
     Route: 048
     Dates: end: 20210309
  16. MOTEGRITY [Concomitant]
     Active Substance: PRUCALOPRIDE SUCCINATE
     Dosage: 2 MILLIGRAM
     Route: 048
     Dates: end: 20210309
  17. REPATHA [Suspect]
     Active Substance: EVOLOCUMAB
     Indication: BLOOD CHOLESTEROL INCREASED
     Dosage: 140 MILLIGRAM PER MILLILITRE
     Route: 058
  18. ALPRAZOLAM. [Concomitant]
     Active Substance: ALPRAZOLAM
     Dosage: 2 MILLIGRAM, TID
     Route: 048
  19. BIOTIN [Concomitant]
     Active Substance: BIOTIN
     Dosage: UNK
  20. PERCOCET [Concomitant]
     Active Substance: ACETAMINOPHEN\OXYCODONE HYDROCHLORIDE
     Dosage: UNK
     Dates: end: 20210309
  21. NITROGLYCERIN. [Concomitant]
     Active Substance: NITROGLYCERIN
     Dosage: 0.4 MILLIGRAM
     Route: 060
  22. FLUCONAZOLE. [Concomitant]
     Active Substance: FLUCONAZOLE
     Dosage: 150 MILLIGRAM
     Dates: end: 20210309
  23. BENZONATATE. [Concomitant]
     Active Substance: BENZONATATE
     Dosage: 200 MILLIGRAM
     Dates: end: 20210309
  24. OXYCODONE AND ACETAMINOPHEN [Concomitant]
     Active Substance: ACETAMINOPHEN\OXYCODONE HYDROCHLORIDE
     Dosage: (10/325) MILLIGRAM, AS NECESSARY
  25. OMEPRAZOLE. [Concomitant]
     Active Substance: OMEPRAZOLE
     Dosage: 20 MILLIGRAM, QD
     Route: 048
  26. CYCLOBENZAPRINE. [Concomitant]
     Active Substance: CYCLOBENZAPRINE
     Dosage: 5 MILLIGRAM
  27. PROMETHAZINE [Concomitant]
     Active Substance: PROMETHAZINE HYDROCHLORIDE
     Dosage: 6.25 (MG/5 ML)
  28. ACETAMINOPHEN;HYDROCODONE [Concomitant]
     Active Substance: ACETAMINOPHEN\HYDROCODONE
     Dosage: (10/325) MILLIGRAM (1 OR 1/2 TABLET EVERY SIX HOURS)MILLIGRAM, AS NECESSARY
  29. ASPIRINE [Concomitant]
     Active Substance: ASPIRIN
     Dosage: 81 MILLIGRAM, QD
     Route: 048
  30. VITAMIN D3 [Concomitant]
     Active Substance: CHOLECALCIFEROL
     Dosage: UNK
  31. BUTALBITAL, ACETAMINOPHEN, AND CAFFEINE [Concomitant]
     Active Substance: ACETAMINOPHEN\BUTALBITAL\CAFFEINE
     Dosage: (50/300/40) MILLIGRAM
     Dates: end: 20190919

REACTIONS (8)
  - Nausea [Unknown]
  - Chest pain [Unknown]
  - Hyperhidrosis [Unknown]
  - Hypoaesthesia [Unknown]
  - Supraventricular tachycardia [Unknown]
  - Chest discomfort [Unknown]
  - Palpitations [Unknown]
  - Dyspnoea exertional [Unknown]

NARRATIVE: CASE EVENT DATE: 20210306
